FAERS Safety Report 7059696-0 (Version None)
Quarter: 2010Q4

REPORT INFORMATION
  Report Type: 
  Country: None (occurrence: None)
  Receive Date: 20101025
  Receipt Date: 20101014
  Transmission Date: 20110411
  Serious: Yes (Other)
  Sender: FDA-Public Use
  Company Number: US-JNJFOC-20101004440

PATIENT
  Sex: Male
  Weight: 69.4 kg

DRUGS (5)
  1. REMICADE [Suspect]
     Indication: CROHN'S DISEASE
     Dosage: ON INFLIXIMAB IN THE PAST DATES NOT PROVIDED
     Route: 065
  2. REMICADE [Suspect]
     Route: 065
  3. ASACOL [Concomitant]
     Route: 065
  4. PREDNISONE [Concomitant]
     Route: 065
  5. IMURAN [Concomitant]
     Route: 065

REACTIONS (1)
  - INTESTINAL RESECTION [None]
